FAERS Safety Report 8250265-3 (Version None)
Quarter: 2012Q1

REPORT INFORMATION
  Report Type: 
  Country: None (occurrence: None)
  Receive Date: 20120328
  Receipt Date: 20120313
  Transmission Date: 20120608
  Serious: Yes (Hospitalization, Other)
  Sender: FDA-Public Use
  Company Number: FK201200853

PATIENT
  Age: 56 Year
  Sex: Female

DRUGS (3)
  1. CYTARABINE [Suspect]
     Indication: ACUTE MYELOID LEUKAEMIA
  2. DAUNORUBICIN HCL [Suspect]
     Indication: ACUTE MYELOID LEUKAEMIA
  3. LESTAURTINIB (LESTAURTINIB) (LESTAURTINIB) [Suspect]
     Indication: ACUTE MYELOID LEUKAEMIA

REACTIONS (9)
  - ABDOMINAL PAIN UPPER [None]
  - MELAENA [None]
  - HYPOTENSION [None]
  - NEUTROPENIA [None]
  - MUCOSAL INFLAMMATION [None]
  - GASTRITIS [None]
  - VOMITING [None]
  - TACHYCARDIA [None]
  - NEUTROPENIC SEPSIS [None]
